FAERS Safety Report 4980288-9 (Version None)
Quarter: 2006Q2

REPORT INFORMATION
  Report Type: 
  Country: None (occurrence: None)
  Receive Date: 20060420
  Receipt Date: 20060420
  Transmission Date: 20061013
  Serious: Yes (Other)
  Sender: FDA-Public Use
  Company Number: None

PATIENT
  Age: 28 Year
  Sex: Male
  Weight: 84.369 kg

DRUGS (1)
  1. TOPAMAX [Suspect]
     Indication: CONVULSION
     Dosage: 200 MG  BID  PO
     Route: 048
     Dates: start: 20050801, end: 20060329

REACTIONS (2)
  - NEPHROLITHIASIS [None]
  - URINARY RETENTION [None]
